FAERS Safety Report 8066761-8 (Version None)
Quarter: 2012Q1

REPORT INFORMATION
  Report Type: 
  Country: None (occurrence: None)
  Receive Date: 20120124
  Receipt Date: 20120116
  Transmission Date: 20120608
  Serious: Yes (Other)
  Sender: FDA-Public Use
  Company Number: TR-BAYER-2012-002990

PATIENT
  Age: 74 Year
  Sex: Female

DRUGS (5)
  1. CARDIOVASCULAR SYSTEM DRUGS [Concomitant]
     Indication: BLOOD PRESSURE DECREASED
  2. ACETYLSALICYLIC ACID SRT [Suspect]
     Indication: ANTICOAGULANT THERAPY
     Dosage: DAILY DOSE 100 MG
  3. CLOPIDOGREL [Suspect]
     Indication: ANTICOAGULANT THERAPY
     Dosage: DAILY DOSE 75 MG
  4. ANTITHROMBOTIC AGENTS [Concomitant]
     Indication: THROMBOSIS PROPHYLAXIS
     Dosage: CONTINOUS INFUSION AND INTERIM BOLUS +#8211;WHEN NECESSARY
  5. ENOXAPARIN [Suspect]
     Indication: ANTICOAGULANT THERAPY
     Dosage: DAILY DOSE 80 MG

REACTIONS (2)
  - EXTREMITY NECROSIS [None]
  - CYANOSIS [None]
